FAERS Safety Report 10018983 (Version 1)
Quarter: 2014Q1

REPORT INFORMATION
  Report Type: Report from Study
  Country: US (occurrence: US)
  Receive Date: 20140318
  Receipt Date: 20140318
  Transmission Date: 20141002
  Serious: Yes (Hospitalization)
  Sender: FDA-Public Use
  Company Number: US-ABBVIE-14P-163-1211090-00

PATIENT
  Age: 74 Year
  Sex: Female
  Weight: 39.73 kg

DRUGS (6)
  1. HUMIRA [Suspect]
     Indication: CROHN^S DISEASE
     Route: 058
     Dates: start: 201305, end: 20140119
  2. DEXILANT [Concomitant]
     Indication: GASTROOESOPHAGEAL REFLUX DISEASE
  3. FUROSEMIDE [Concomitant]
     Indication: FLUID RETENTION
  4. POTASSIUM [Concomitant]
     Indication: HYPOKALAEMIA
  5. PROBIOTIC [Concomitant]
     Indication: CROHN^S DISEASE
  6. VITAMIN D [Concomitant]
     Indication: VITAMIN SUPPLEMENTATION

REACTIONS (5)
  - Hypophagia [Recovered/Resolved]
  - Diarrhoea [Recovered/Resolved]
  - Weight decreased [Recovering/Resolving]
  - Abdominal pain [Recovered/Resolved]
  - Nausea [Recovered/Resolved]
